FAERS Safety Report 16420042 (Version 1)
Quarter: 2019Q2

REPORT INFORMATION
  Report Type: Report from Study
  Country: CA (occurrence: CA)
  Receive Date: 20190612
  Receipt Date: 20190612
  Transmission Date: 20190711
  Serious: Yes (Other)
  Sender: FDA-Public Use
  Company Number: CA-PFIZER INC-2019247484

PATIENT
  Age: 30 Year
  Sex: Female

DRUGS (9)
  1. COSENTYX [Suspect]
     Active Substance: SECUKINUMAB
     Dosage: 150 MG, MONTHLY
     Route: 058
  2. COSENTYX [Suspect]
     Active Substance: SECUKINUMAB
     Dosage: 150 MG, WEEKLY
     Route: 058
  3. FLUNARIZINE [Concomitant]
     Active Substance: FLUNARIZINE
     Dosage: UNK
  4. KETOROLAC TROMETHAMINE. [Suspect]
     Active Substance: KETOROLAC TROMETHAMINE
     Dosage: UNK
     Route: 065
  5. COSENTYX [Suspect]
     Active Substance: SECUKINUMAB
     Dosage: 150 MG, WEEKLY
     Route: 058
  6. NAPROXEN. [Concomitant]
     Active Substance: NAPROXEN
     Dosage: UNK
  7. COSENTYX [Suspect]
     Active Substance: SECUKINUMAB
     Indication: ANKYLOSING SPONDYLITIS
     Dosage: 300 MG, MONTHLY
     Route: 058
  8. NABILONE [Concomitant]
     Active Substance: NABILONE
     Dosage: UNK
  9. TRAMADOL HYDROCHLORIDE. [Concomitant]
     Active Substance: TRAMADOL HYDROCHLORIDE
     Dosage: UNK

REACTIONS (13)
  - Drug ineffective [Recovering/Resolving]
  - Swelling [Recovering/Resolving]
  - Joint swelling [Recovering/Resolving]
  - Diarrhoea [Recovering/Resolving]
  - Erythema [Recovering/Resolving]
  - Nasopharyngitis [Recovering/Resolving]
  - Product administration error [Recovering/Resolving]
  - Therapeutic response decreased [Recovering/Resolving]
  - Device issue [Recovering/Resolving]
  - Haematemesis [Recovering/Resolving]
  - Incorrect dose administered [Recovering/Resolving]
  - Tenderness [Recovering/Resolving]
  - Pain [Recovering/Resolving]
